FAERS Safety Report 9369398 (Version 9)
Quarter: 2014Q2

REPORT INFORMATION
  Report Type: Report from Study
  Country: BR (occurrence: BR)
  Receive Date: 20130626
  Receipt Date: 20140403
  Transmission Date: 20141212
  Serious: Yes (Hospitalization, Disabling, Other)
  Sender: FDA-Public Use
  Company Number: BR-ROCHE-1197854

PATIENT
  Age: 71 Year
  Sex: Female
  Weight: 55 kg

DRUGS (8)
  1. MABTHERA [Suspect]
     Indication: RHEUMATOID ARTHRITIS
     Dosage: DATE OF LAST DOSE :15/JUN/2012, 13/SEP/2013
     Route: 042
     Dates: start: 2012
  2. MABTHERA [Suspect]
     Route: 042
     Dates: start: 20120601
  3. MABTHERA [Suspect]
     Route: 042
     Dates: start: 20130601
  4. METHOTREXATE [Concomitant]
     Indication: RHEUMATOID ARTHRITIS
     Route: 065
  5. DEFLAZACORT [Concomitant]
     Indication: RHEUMATOID ARTHRITIS
     Route: 065
  6. MELOXICAM [Concomitant]
     Route: 065
  7. INSULIN [Concomitant]
     Route: 065
  8. IBUPRIN [Concomitant]

REACTIONS (37)
  - Hyperglycaemia [Recovered/Resolved]
  - Muscular weakness [Not Recovered/Not Resolved]
  - Bone disorder [Not Recovered/Not Resolved]
  - Carpal tunnel decompression [Recovered/Resolved]
  - Influenza [Recovered/Resolved]
  - Sinusitis [Recovered/Resolved]
  - Finger deformity [Unknown]
  - Arthralgia [Not Recovered/Not Resolved]
  - Peripheral swelling [Not Recovered/Not Resolved]
  - Paraesthesia [Not Recovered/Not Resolved]
  - Influenza [Not Recovered/Not Resolved]
  - Peripheral swelling [Recovered/Resolved]
  - Paraesthesia [Recovered/Resolved]
  - Joint instability [Recovered/Resolved]
  - Nasopharyngitis [Recovered/Resolved]
  - Oropharyngeal pain [Recovered/Resolved]
  - Cough [Recovered/Resolved]
  - Fatigue [Recovering/Resolving]
  - Depressed mood [Recovered/Resolved]
  - Depressed mood [Recovered/Resolved]
  - Joint swelling [Not Recovered/Not Resolved]
  - Sinusitis [Recovered/Resolved]
  - Hyperglycaemia [Not Recovered/Not Resolved]
  - Speech disorder [Recovered/Resolved]
  - Pain [Recovering/Resolving]
  - Dizziness [Recovered/Resolved]
  - Pain in extremity [Recovered/Resolved]
  - Peripheral swelling [Not Recovered/Not Resolved]
  - Formication [Not Recovered/Not Resolved]
  - Laceration [Unknown]
  - Malaise [Recovered/Resolved]
  - Procedural pain [Not Recovered/Not Resolved]
  - Blood cholesterol increased [Not Recovered/Not Resolved]
  - Hypothyroidism [Not Recovered/Not Resolved]
  - Renal impairment [Not Recovered/Not Resolved]
  - Drug ineffective [Unknown]
  - Pain [Not Recovered/Not Resolved]
